FAERS Safety Report 12153680 (Version 2)
Quarter: 2016Q1

REPORT INFORMATION
  Report Type: Spontaneous
  Country: GB (occurrence: GB)
  Receive Date: 20160307
  Receipt Date: 20160317
  Transmission Date: 20160526
  Serious: Yes (Other)
  Sender: FDA-Public Use
  Company Number: GB-009507513-1603GBR002317

PATIENT
  Age: 63 Year
  Sex: Female
  Weight: 82.55 kg

DRUGS (13)
  1. BISOPROLOL [Concomitant]
     Active Substance: BISOPROLOL
  2. ACETAMINOPHEN (+) DIHYDROCODEINE BITARTRATE [Concomitant]
     Active Substance: ACETAMINOPHEN\DIHYDROCODEINE BITARTRATE
  3. FEXOFENADINE HYDROCHLORIDE. [Concomitant]
     Active Substance: FEXOFENADINE HYDROCHLORIDE
     Indication: PRURITUS
  4. FUROSEMIDE. [Concomitant]
     Active Substance: FUROSEMIDE
  5. MONTELUKAST SODIUM. [Suspect]
     Active Substance: MONTELUKAST SODIUM
     Indication: URTICARIA
     Dosage: 10 MG, UNK
     Route: 048
     Dates: start: 20160217, end: 20160221
  6. BENDROFLUMETHIAZIDE [Concomitant]
     Active Substance: BENDROFLUMETHIAZIDE
  7. CARBAMAZEPINE. [Concomitant]
     Active Substance: CARBAMAZEPINE
  8. FOLIC ACID. [Concomitant]
     Active Substance: FOLIC ACID
  9. LEVOTHYROXINE SODIUM. [Concomitant]
     Active Substance: LEVOTHYROXINE SODIUM
  10. ALLOPURINOL. [Concomitant]
     Active Substance: ALLOPURINOL
  11. GABAPENTIN. [Concomitant]
     Active Substance: GABAPENTIN
  12. LANSOPRAZOLE. [Concomitant]
     Active Substance: LANSOPRAZOLE
  13. AMITRIPTYLINE HYDROCHLORIDE. [Concomitant]
     Active Substance: AMITRIPTYLINE HYDROCHLORIDE

REACTIONS (5)
  - Oral mucosal blistering [Recovering/Resolving]
  - Stomatitis [Recovering/Resolving]
  - Malaise [Recovered/Resolved]
  - Mouth swelling [Recovering/Resolving]
  - Somnolence [Recovering/Resolving]

NARRATIVE: CASE EVENT DATE: 20160217
